FAERS Safety Report 9747778 (Version 1)
Quarter: 2013Q4

REPORT INFORMATION
  Report Type: Report from Study
  Country: CA (occurrence: CA)
  Receive Date: 20131212
  Receipt Date: 20131212
  Transmission Date: 20140711
  Serious: Yes (Other)
  Sender: FDA-Public Use
  Company Number: CA-BAYER-2013-148626

PATIENT
  Age: 43 Year
  Sex: Female

DRUGS (9)
  1. BETASERON [Suspect]
     Indication: MULTIPLE SCLEROSIS
     Dosage: 0.250 MG, UNK
     Dates: start: 19990506, end: 20131013
  2. DETROL [Concomitant]
  3. HYZAAR [Concomitant]
  4. METOPROLOL [Concomitant]
  5. ALERTEC [Concomitant]
  6. LOSARTAN [Concomitant]
  7. HYDROCHLOROTHIAZIDE [Concomitant]
  8. BACLOFEN [Concomitant]
  9. ADVIL [Concomitant]
     Indication: PREMEDICATION

REACTIONS (6)
  - Secondary progressive multiple sclerosis [Unknown]
  - Drug ineffective [None]
  - Back pain [Unknown]
  - Dysstasia [Unknown]
  - Pyrexia [Unknown]
  - Chills [Unknown]
